FAERS Safety Report 17635140 (Version 2)
Quarter: 2020Q2

REPORT INFORMATION
  Report Type: Report from Study
  Country: None (occurrence: CA)
  Receive Date: 20200406
  Receipt Date: 20200406
  Transmission Date: 20200713
  Serious: Yes (Other)
  Sender: FDA-Public Use
  Company Number: CA-ABBVIE-20K-028-3351296-00

PATIENT
  Sex: Female

DRUGS (1)
  1. HUMIRA [Suspect]
     Active Substance: ADALIMUMAB
     Indication: CROHN^S DISEASE
     Route: 058
     Dates: start: 20080515

REACTIONS (14)
  - Inguinal hernia [Unknown]
  - Ulcer [Unknown]
  - Large intestine polyp [Unknown]
  - Diarrhoea [Unknown]
  - Hysterectomy [Unknown]
  - Gastrointestinal disorder [Unknown]
  - Drug specific antibody present [Unknown]
  - Aphthous ulcer [Unknown]
  - Frequent bowel movements [Unknown]
  - Abdominal pain [Unknown]
  - Intestinal prolapse [Unknown]
  - Drug level decreased [Unknown]
  - Inflammatory bowel disease [Unknown]
  - Cholecystectomy [Unknown]
